FAERS Safety Report 17470441 (Version 1)
Quarter: 2020Q1

REPORT INFORMATION
  Report Type: Spontaneous
  Country: US (occurrence: US)
  Receive Date: 20200228
  Receipt Date: 20200228
  Transmission Date: 20200409
  Serious: Yes (Other)
  Sender: FDA-Public Use
  Company Number: NVSC2020US048449

PATIENT
  Sex: Female

DRUGS (1)
  1. METHYLPREDNISOLONE. [Suspect]
     Active Substance: METHYLPREDNISOLONE
     Indication: PRODUCT USED FOR UNKNOWN INDICATION
     Route: 065
     Dates: start: 20191231, end: 20200102

REACTIONS (5)
  - Vision blurred [Unknown]
  - Cataract [Unknown]
  - Visual impairment [Unknown]
  - Flushing [Unknown]
  - Concomitant disease progression [Unknown]
